FAERS Safety Report 8797925 (Version 1)
Quarter: 2012Q4

REPORT INFORMATION
  Report Type: 
  Country: GB (occurrence: GB)
  Receive Date: 20120920
  Receipt Date: 20120920
  Transmission Date: 20130627
  Serious: Yes (Other)
  Sender: FDA-Public Use
  Company Number: GB-B.I. PHARMACEUTICALS,INC./RIDGEFIELD-2012-UK-01207UK

PATIENT
  Sex: Male

DRUGS (7)
  1. PRADAXA [Suspect]
     Indication: PROPHYLAXIS
     Dosage: 150 mg
     Route: 048
  2. BIMATOPROST [Concomitant]
  3. DORZOLAMIDE [Concomitant]
  4. FINASTERIDE [Concomitant]
     Dosage: 5 mg
     Route: 048
  5. LANSOPRAZOLE [Concomitant]
     Dosage: 30 mg
     Route: 048
  6. TAMSULOSIN [Concomitant]
     Dosage: 400 mcg
     Route: 048
  7. TIMOLOL [Concomitant]

REACTIONS (1)
  - Deep vein thrombosis postoperative [Unknown]
